FAERS Safety Report 6003060-X (Version None)
Quarter: 2008Q4

REPORT INFORMATION
  Report Type: 
  Country: None (occurrence: None)
  Receive Date: 20081215
  Receipt Date: 20081205
  Transmission Date: 20090506
  Serious: Yes (Hospitalization)
  Sender: FDA-Public Use
  Company Number: US-PFIZER INC-2008078557

PATIENT
  Sex: Female
  Weight: 45.351 kg

DRUGS (19)
  1. BLINDED *PLACEBO [Suspect]
     Indication: OSTEOARTHRITIS
     Route: 048
     Dates: start: 20070705
  2. CELECOXIB [Suspect]
     Indication: OSTEOARTHRITIS
     Route: 048
     Dates: start: 20070705
  3. BLINDED IBUPROFEN [Suspect]
     Indication: OSTEOARTHRITIS
     Route: 048
     Dates: start: 20070705
  4. BLINDED NAPROXEN [Suspect]
     Indication: OSTEOARTHRITIS
     Route: 048
     Dates: start: 20070705
  5. BLINDED *PLACEBO [Suspect]
     Indication: RHEUMATOID ARTHRITIS
  6. CELECOXIB [Suspect]
     Indication: RHEUMATOID ARTHRITIS
  7. BLINDED IBUPROFEN [Suspect]
     Indication: RHEUMATOID ARTHRITIS
  8. BLINDED NAPROXEN [Suspect]
     Indication: RHEUMATOID ARTHRITIS
  9. NEXIUM [Concomitant]
     Route: 048
     Dates: start: 20070705
  10. ZOCOR [Concomitant]
     Indication: HYPERCHOLESTEROLAEMIA
     Dosage: QD
     Dates: start: 20070520
  11. PREMARIN [Concomitant]
     Indication: HORMONE REPLACEMENT THERAPY
     Dosage: QD
     Dates: start: 19830401
  12. COZAAR [Concomitant]
     Indication: HYPERTENSION
     Dosage: QD
     Dates: start: 20060101
  13. LYRICA [Concomitant]
     Indication: TREMOR
     Dosage: QD
     Dates: start: 20060501
  14. NEURONTIN [Concomitant]
     Indication: TREMOR
     Dosage: BID
     Dates: start: 20060101
  15. TERIPARATIDE [Concomitant]
     Indication: OSTEOPOROSIS
     Dosage: QD
     Dates: start: 20060101
  16. VITAMIN D [Concomitant]
     Indication: VITAMIN SUPPLEMENTATION
     Dosage: 1 TAB
     Dates: start: 20000101
  17. ASCORBIC ACID [Concomitant]
     Indication: VITAMIN SUPPLEMENTATION
     Dosage: QD
     Dates: start: 19800101
  18. GLUCOSAMINE WITH MSM [Concomitant]
     Indication: SUPPLEMENTATION THERAPY
     Dosage: 1 TAB,QD
     Dates: start: 20010101
  19. COREG [Concomitant]
     Indication: HYPERTENSION
     Dosage: BID
     Dates: start: 20060101

REACTIONS (1)
  - OSTEOARTHRITIS [None]
